FAERS Safety Report 5946666-6 (Version None)
Quarter: 2008Q4

REPORT INFORMATION
  Report Type: 
  Country: None (occurrence: None)
  Receive Date: 20081110
  Receipt Date: 20080804
  Transmission Date: 20090506
  Serious: No
  Sender: FDA-Public Use
  Company Number: A0739574A

PATIENT
  Age: 54 Year
  Sex: Female

DRUGS (2)
  1. ALTABAX [Suspect]
     Route: 061
     Dates: start: 20071201, end: 20071201
  2. NO CONCURRENT MEDICATION [Concomitant]

REACTIONS (2)
  - APPLICATION SITE IRRITATION [None]
  - INFECTION [None]
